FAERS Safety Report 14270786 (Version 1)
Quarter: 2017Q4

REPORT INFORMATION
  Report Type: Spontaneous
  Country: JP (occurrence: JP)
  Receive Date: 20171211
  Receipt Date: 20171211
  Transmission Date: 20180321
  Serious: Yes (Death, Other)
  Sender: FDA-Public Use
  Company Number: JP-OTSUKA-008698

PATIENT
  Age: 54 Year
  Sex: Male

DRUGS (10)
  1. RHYTHMY [Concomitant]
     Active Substance: RILMAZAFONE HYDROCHLORIDE
     Indication: INSOMNIA
     Dosage: 2 MG, QD
     Route: 048
     Dates: start: 20060824, end: 20100120
  2. RISPERDAL [Suspect]
     Active Substance: RISPERIDONE
     Indication: SEDATION COMPLICATION
     Dosage: 6 MG, QD
     Route: 048
     Dates: start: 20000831
  3. AKINETON [Concomitant]
     Active Substance: BIPERIDEN HYDROCHLORIDE
     Indication: PARKINSON^S DISEASE
     Dosage: 1.33-2 MG, QID
     Route: 048
     Dates: end: 20100120
  4. RISPERDAL [Suspect]
     Active Substance: RISPERIDONE
     Dosage: 1.67 MG, TID
     Route: 048
     Dates: end: 20100120
  5. MYSLEE [Concomitant]
     Active Substance: ZOLPIDEM TARTRATE
     Indication: INSOMNIA
     Dosage: 5 MG, QD
     Route: 048
     Dates: start: 20090526, end: 20100120
  6. LULLAN [Suspect]
     Active Substance: PEROSPIRONE HYDROCHLORIDE
     Indication: MIDDLE INSOMNIA
     Dosage: 4 MG, QD
     Route: 048
     Dates: start: 20080916, end: 20100120
  7. ABILIFY [Suspect]
     Active Substance: ARIPIPRAZOLE
     Indication: DEPRESSION
     Dosage: 6 MG, QD
     Route: 048
     Dates: start: 20090915, end: 20100120
  8. ABILIFY [Suspect]
     Active Substance: ARIPIPRAZOLE
     Indication: SCHIZOPHRENIA
  9. DEPAS [Concomitant]
     Active Substance: ETIZOLAM
     Indication: MALAISE
     Dosage: 0.67 MG, TID
     Route: 048
     Dates: start: 20081021, end: 20100120
  10. ZOLPIDEM [Concomitant]
     Active Substance: ZOLPIDEM\ZOLPIDEM TARTRATE
     Indication: PRODUCT USED FOR UNKNOWN INDICATION
     Dosage: UNK
     Route: 065
     Dates: start: 20090526, end: 20100120

REACTIONS (2)
  - Sudden death [Fatal]
  - Pneumonia [Unknown]

NARRATIVE: CASE EVENT DATE: 20100120
